FAERS Safety Report 4783394-7 (Version None)
Quarter: 2005Q3

REPORT INFORMATION
  Report Type: 
  Country: None (occurrence: None)
  Receive Date: 20050929
  Receipt Date: 20050823
  Transmission Date: 20060218
  Serious: Yes (Hospitalization)
  Sender: FDA-Public Use
  Company Number: PHHO2005US13262

PATIENT
  Age: 51 Year
  Sex: Female
  Weight: 67 kg

DRUGS (5)
  1. FTY720 VS MYCOPHENOLATE MOFETIL [Suspect]
     Indication: RENAL TRANSPLANT
     Dosage: CODE NOT BROKEN
     Route: 048
     Dates: start: 20040901
  2. NEORAL [Suspect]
     Indication: RENAL TRANSPLANT
     Dosage: 150 UNK, BID
     Route: 065
  3. PREDNISONE [Suspect]
     Indication: RENAL TRANSPLANT
     Dosage: NOT REPORTED
     Route: 065
  4. PREDNISONE [Suspect]
     Dosage: 20 MG, QD
     Route: 065
  5. PREDNISONE [Suspect]
     Dosage: 5 MG, QD
     Route: 065

REACTIONS (4)
  - ASTHMA [None]
  - DYSPNOEA [None]
  - LOBAR PNEUMONIA [None]
  - PNEUMONIA [None]
